FAERS Safety Report 19410342 (Version 1)
Quarter: 2021Q2

REPORT INFORMATION
  Report Type: Report from Study
  Country: US (occurrence: US)
  Receive Date: 20210614
  Receipt Date: 20210614
  Transmission Date: 20210717
  Serious: No
  Sender: FDA-Public Use
  Company Number: US-AMRYT PHARMACEUTICALS DAC-AEGR005168

PATIENT
  Age: 32 Year
  Sex: Male
  Weight: 61.22 kg

DRUGS (2)
  1. MYALEPT [Suspect]
     Active Substance: METRELEPTIN
     Indication: LIPODYSTROPHY ACQUIRED
     Dosage: 2.5 MILLIGRAM, QD
     Route: 058
     Dates: start: 20210422
  2. MYALEPT [Suspect]
     Active Substance: METRELEPTIN
     Dosage: 5 MILLIGRAM, QD
     Route: 058
     Dates: start: 20210424

REACTIONS (5)
  - Blood triglycerides increased [Unknown]
  - Hepatic atrophy [Unknown]
  - Weight decreased [Not Recovered/Not Resolved]
  - Diet noncompliance [Unknown]
  - Hypoglycaemia [Recovered/Resolved]

NARRATIVE: CASE EVENT DATE: 20210505
